FAERS Safety Report 6274683-8 (Version None)
Quarter: 2009Q3

REPORT INFORMATION
  Report Type: 
  Country: None (occurrence: None)
  Receive Date: 20090721
  Receipt Date: 20071109
  Transmission Date: 20100115
  Serious: Yes (Other)
  Sender: FDA-Public Use
  Company Number: US-ASTRAZENECA-2006UW22501

PATIENT
  Age: 47 Year
  Sex: Female
  Weight: 98.4 kg

DRUGS (7)
  1. SEROQUEL [Suspect]
     Indication: DEPRESSION
     Dosage: 25-50 MG
     Route: 048
     Dates: start: 20050817
  2. SEROQUEL [Suspect]
     Route: 048
  3. EFFEXOR [Concomitant]
     Dates: start: 20050817
  4. PREMARIN [Concomitant]
     Dates: start: 20060531
  5. VERAPAMIL [Concomitant]
     Dates: start: 20060531
  6. AVANDAMET XL [Concomitant]
     Dosage: 4/500, BID
     Dates: start: 20060531
  7. GLUCOTROL [Concomitant]
     Dates: start: 20060531

REACTIONS (3)
  - DIABETES MELLITUS [None]
  - DIABETIC NEUROPATHY [None]
  - TYPE 2 DIABETES MELLITUS [None]
